FAERS Safety Report 8564880-0 (Version None)
Quarter: 2012Q3

REPORT INFORMATION
  Report Type: 
  Country: None (occurrence: None)
  Receive Date: 20120803
  Receipt Date: 20120206
  Transmission Date: 20120928
  Serious: Yes (Other)
  Sender: FDA-Public Use
  Company Number: ES-EISAI INC-E2090-01974-SPO-ES

PATIENT
  Age: 27 Year
  Sex: Female

DRUGS (1)
  1. ZONEGRAN [Suspect]
     Indication: HEADACHE
     Route: 048
     Dates: start: 20110325

REACTIONS (5)
  - RESTLESSNESS [None]
  - THINKING ABNORMAL [None]
  - SALIVARY HYPERSECRETION [None]
  - DIZZINESS [None]
  - DEPRESSED MOOD [None]
